FAERS Safety Report 24918601 (Version 3)
Quarter: 2025Q3

REPORT INFORMATION
  Report Type: Spontaneous
  Country: US (occurrence: US)
  Receive Date: 20250203
  Receipt Date: 20250917
  Transmission Date: 20251020
  Serious: No
  Sender: SANOFI AVENTIS
  Company Number: US-SA-2025SA032617

PATIENT
  Age: 63 Year
  Sex: Male

DRUGS (1)
  1. DUPIXENT [Suspect]
     Active Substance: DUPILUMAB
     Indication: Dermatitis atopic
     Dosage: 300 MG, QOW
     Route: 058
     Dates: start: 20241121

REACTIONS (10)
  - Dry skin [Unknown]
  - Skin fissures [Unknown]
  - Dizziness [Unknown]
  - Pruritus [Unknown]
  - Viral infection [Unknown]
  - Cough [Unknown]
  - Nasal congestion [Unknown]
  - Eye discharge [Unknown]
  - Arthralgia [Unknown]
  - Dry eye [Unknown]

NARRATIVE: CASE EVENT DATE: 20250501
